FAERS Safety Report 18287546 (Version 2)
Quarter: 2020Q3

REPORT INFORMATION
  Report Type: Spontaneous
  Country: IT (occurrence: IT)
  Receive Date: 20200921
  Receipt Date: 20200925
  Transmission Date: 20201103
  Serious: Yes (Hospitalization, Disabling, Other)
  Sender: FDA-Public Use
  Company Number: NVSC2020IT255637

PATIENT
  Age: 65 Year
  Sex: Male

DRUGS (4)
  1. OXALIPLATIN. [Suspect]
     Active Substance: OXALIPLATIN
     Indication: NEUROENDOCRINE TUMOUR OF THE LUNG METASTATIC
     Dosage: 104 MG/M2, CYCLIC, DAY 1 EVERY 3 WEEKS
     Route: 065
     Dates: start: 20190926
  2. CAPECITABINE. [Suspect]
     Active Substance: CAPECITABINE
     Indication: LUNG NEOPLASM MALIGNANT
     Dosage: 1.6 G/M2/DAY, DAYS 1?15 EVERY 3 WEEKS
     Route: 065
  3. CAPECITABINE. [Suspect]
     Active Substance: CAPECITABINE
     Indication: METASTASES TO BONE
  4. OXALIPLATIN. [Suspect]
     Active Substance: OXALIPLATIN
     Indication: METASTASES TO BONE

REACTIONS (7)
  - Confusional state [Recovered/Resolved]
  - Toxic encephalopathy [Recovered/Resolved]
  - Memory impairment [Recovered/Resolved]
  - Hyperammonaemic encephalopathy [Recovered/Resolved]
  - Product use in unapproved indication [Unknown]
  - Gait disturbance [Recovered/Resolved]
  - Hyperammonaemia [Recovered/Resolved]

NARRATIVE: CASE EVENT DATE: 20191007
